FAERS Safety Report 8932700 (Version 2)
Quarter: 2015Q2

REPORT INFORMATION
  Report Type: Spontaneous
  Country: US (occurrence: US)
  Receive Date: 20121129
  Receipt Date: 20150618
  Transmission Date: 20150821
  Serious: Yes (Life-Threatening, Congenital Anomaly, Other)
  Sender: FDA-Public Use
  Company Number: US-ELI_LILLY_AND_COMPANY-US201211005898

PATIENT

DRUGS (1)
  1. PROZAC [Suspect]
     Active Substance: FLUOXETINE HYDROCHLORIDE
     Indication: PRODUCT USED FOR UNKNOWN INDICATION
     Dosage: 1 DF, UNKNOWN
     Route: 064

REACTIONS (7)
  - Congenital heart valve disorder [Unknown]
  - Hydronephrosis [Recovered/Resolved]
  - Premature baby [Unknown]
  - Congenital tricuspid valve atresia [Unknown]
  - Cardiac failure [Unknown]
  - Renal fusion anomaly [Unknown]
  - Foetal exposure during pregnancy [Recovered/Resolved]
